FAERS Safety Report 23908018 (Version 2)
Quarter: 2024Q2

REPORT INFORMATION
  Report Type: Spontaneous
  Country: CZ (occurrence: CZ)
  Receive Date: 20240528
  Receipt Date: 20240603
  Transmission Date: 20240715
  Serious: Yes (Hospitalization, Other)
  Sender: FDA-Public Use
  Company Number: CZ-PFM-2024-03138

PATIENT
  Age: 64 Year
  Sex: Female
  Weight: 68 kg

DRUGS (4)
  1. BRAFTOVI [Suspect]
     Active Substance: ENCORAFENIB
     Indication: BRAF gene mutation
     Dosage: 450 MG, QD (1/DAY), 75MG CAPSULES (6-0-0)
     Route: 048
     Dates: start: 20220127, end: 20220210
  2. BRAFTOVI [Suspect]
     Active Substance: ENCORAFENIB
     Indication: Metastatic malignant melanoma
     Dosage: 225 MG, QD (1/DAY), 75MG CAPSULES, IN REDUCED DAILY DOSE (3-0-0)
     Route: 048
     Dates: start: 202203
  3. MEKTOVI [Suspect]
     Active Substance: BINIMETINIB
     Indication: BRAF gene mutation
     Dosage: 90 MG, QD (1/DAY), 15MG TABLETS (3-0-3)
     Route: 048
     Dates: start: 20220127, end: 20220210
  4. MEKTOVI [Suspect]
     Active Substance: BINIMETINIB
     Indication: Metastatic malignant melanoma
     Dosage: 45 MG, QD (1/DAY), 15MG TABLETS, IN REDUCED DAILY DOSE (2-0-1)
     Route: 048
     Dates: start: 202203

REACTIONS (11)
  - Abdominal pain [Unknown]
  - Vomiting [Unknown]
  - Colitis ulcerative [Unknown]
  - Anaemia [Unknown]
  - C-reactive protein increased [Unknown]
  - Leukocytosis [Unknown]
  - Electrolyte imbalance [Unknown]
  - Pyrexia [Unknown]
  - Diarrhoea [Unknown]
  - Product use issue [Unknown]
  - Off label use [Unknown]

NARRATIVE: CASE EVENT DATE: 20220202
